FAERS Safety Report 23387547 (Version 1)
Quarter: 2024Q1

REPORT INFORMATION
  Report Type: Spontaneous
  Country: DE (occurrence: DE)
  Receive Date: 20240110
  Receipt Date: 20240110
  Transmission Date: 20240409
  Serious: Yes (Other)
  Sender: FDA-Public Use
  Company Number: None

PATIENT
  Age: 55 Year
  Sex: Male

DRUGS (14)
  1. ERBITUX [Suspect]
     Active Substance: CETUXIMAB
     Indication: Colorectal cancer metastatic
     Dosage: 250 MG/M2, WEEKLY (1/W)
     Route: 065
     Dates: start: 201003
  2. FLUOROURACIL [Suspect]
     Active Substance: FLUOROURACIL
     Indication: Colorectal cancer metastatic
     Dosage: 400 MG/M2, UNK
     Route: 065
     Dates: start: 201003
  3. FLUOROURACIL [Suspect]
     Active Substance: FLUOROURACIL
     Dosage: 600 MG/M2, UNK
     Route: 065
  4. BEVACIZUMAB [Suspect]
     Active Substance: BEVACIZUMAB
     Indication: Colorectal cancer metastatic
     Dosage: 5 MG/KG, UNK
     Route: 065
     Dates: start: 201608, end: 201612
  5. LEUCOVORIN [Suspect]
     Active Substance: LEUCOVORIN\LEUCOVORIN CALCIUM
     Indication: Colorectal cancer metastatic
     Dosage: 200 MG/M2, UNK
     Route: 065
     Dates: start: 201003
  6. LEUCOVORIN [Suspect]
     Active Substance: LEUCOVORIN\LEUCOVORIN CALCIUM
     Dosage: 600 MG/M2, UNK
     Route: 065
  7. OXALIPLATIN [Suspect]
     Active Substance: OXALIPLATIN
     Indication: Colorectal cancer metastatic
     Dosage: 85 MG/M2, DAILY
     Route: 065
     Dates: start: 201003
  8. IRINOTECAN [Suspect]
     Active Substance: IRINOTECAN
     Indication: Colorectal cancer metastatic
     Dosage: 180 MG/M2, DAILY
     Route: 065
     Dates: start: 201608
  9. PEMBROLIZUMAB [Suspect]
     Active Substance: PEMBROLIZUMAB
     Indication: Colorectal cancer metastatic
     Dosage: 200 MG/M2, UNK
     Route: 065
     Dates: start: 201712
  10. PEMBROLIZUMAB [Suspect]
     Active Substance: PEMBROLIZUMAB
     Dosage: 200 MG/M2, UNK
     Route: 065
     Dates: start: 2018
  11. IPILIMUMAB [Concomitant]
     Active Substance: IPILIMUMAB
     Indication: Colorectal cancer metastatic
     Dosage: 3 MG/KG IN CYCLE 1, FOLLOWED BY 1 MG/KG IN CYCLE 2-4. CYCLE 3 AND 4 WERE DELAYED
  12. IPILIMUMAB [Concomitant]
     Active Substance: IPILIMUMAB
     Dosage: 3 MG/KG IN CYCLE 1, FOLLOWED BY 1 MG/KG IN CYCLE 2-4. CYCLE 3 AND 4 WERE DELAYED
  13. NIVOLUMAB [Concomitant]
     Active Substance: NIVOLUMAB
     Indication: Colorectal cancer metastatic
     Dosage: DOSE WAS 1 MG /KG IN CYCLE 1 AND 3 MG/KG FROM CYCLE 2 ON.
     Route: 065
  14. NIVOLUMAB [Concomitant]
     Active Substance: NIVOLUMAB
     Dosage: DOSE WAS 1 MG /KG IN CYCLE 1 AND 3 MG/KG FROM CYCLE 2 ON.
     Route: 065

REACTIONS (3)
  - Immune-mediated hepatic disorder [Unknown]
  - Tumour pseudoprogression [Recovering/Resolving]
  - Drug resistance [Unknown]
